FAERS Safety Report 8928456 (Version 1)
Quarter: 2012Q4

REPORT INFORMATION
  Report Type: 
  Country: CA (occurrence: CA)
  Receive Date: 20121128
  Receipt Date: 20121128
  Transmission Date: 20130627
  Serious: Yes (Other)
  Sender: FDA-Public Use
  Company Number: PHHY2012CA108797

PATIENT
  Sex: Female

DRUGS (3)
  1. ACLASTA [Suspect]
     Indication: OSTEOPOROSIS
     Dosage: UNK
     Route: 042
     Dates: start: 20080922
  2. ACLASTA [Suspect]
     Dosage: UNK
     Route: 042
     Dates: start: 20101223
  3. ACLASTA [Suspect]
     Dosage: UNK
     Route: 042
     Dates: start: 20111223

REACTIONS (1)
  - Ankle fracture [Unknown]
